FAERS Safety Report 5511586-8 (Version None)
Quarter: 2007Q4

REPORT INFORMATION
  Report Type: 
  Country: None (occurrence: None)
  Receive Date: 20071109
  Receipt Date: 20071029
  Transmission Date: 20080405
  Serious: Yes (Hospitalization)
  Sender: FDA-Public Use
  Company Number: JP-ASTRAZENECA-2007SE05950

PATIENT
  Age: 29781 Day
  Sex: Female

DRUGS (3)
  1. BLOPRESS TABLETS 4 [Suspect]
     Indication: HYPERTENSION
     Route: 048
     Dates: start: 20061101, end: 20071011
  2. BENET TABLETS 2.5MG [Concomitant]
     Route: 048
  3. NORVASC [Concomitant]
     Route: 048

REACTIONS (3)
  - HAEMOGLOBIN DECREASED [None]
  - PLATELET COUNT DECREASED [None]
  - WHITE BLOOD CELL COUNT DECREASED [None]
